FAERS Safety Report 7081256-6 (Version None)
Quarter: 2010Q4

REPORT INFORMATION
  Report Type: 
  Country: None (occurrence: None)
  Receive Date: 20101103
  Receipt Date: 20101029
  Transmission Date: 20110411
  Serious: Yes (Hospitalization, Other)
  Sender: FDA-Public Use
  Company Number: BR-SANOFI-AVENTIS-2010SA066344

PATIENT
  Age: 27 Year
  Sex: Male
  Weight: 77 kg

DRUGS (3)
  1. LANTUS [Suspect]
     Route: 058
  2. INSULIN PEN NOS [Suspect]
  3. NOVORAPID [Concomitant]
     Route: 058

REACTIONS (6)
  - DIABETIC HYPERGLYCAEMIC COMA [None]
  - DIZZINESS [None]
  - HYPERGLYCAEMIA [None]
  - LIP DISCOLOURATION [None]
  - TREMOR [None]
  - VOMITING [None]
